FAERS Safety Report 5742913-4 (Version None)
Quarter: 2008Q2

REPORT INFORMATION
  Report Type: 
  Country: None (occurrence: None)
  Receive Date: 20080519
  Receipt Date: 20080507
  Transmission Date: 20081010
  Serious: Yes (Other)
  Sender: FDA-Public Use
  Company Number: JP-ROCHE-549653

PATIENT
  Sex: Female
  Weight: 51 kg

DRUGS (13)
  1. ROCALTROL [Suspect]
     Indication: OSTEOPOROSIS PROPHYLAXIS
     Route: 048
     Dates: start: 20080110, end: 20080222
  2. BONALON [Concomitant]
     Route: 048
     Dates: start: 20080110
  3. ANALGESIC/OTHER DRUG COMBINATIONS [Concomitant]
     Indication: PAIN
     Dosage: DRUG NAME: ANTIPYRETICS, ANALGESICS AND ANTI-INFLAMMATORY AGENTS.
     Dates: start: 19980323
  4. ANALGESIC/OTHER DRUG COMBINATIONS [Concomitant]
     Dosage: DRUG NAME: ANTIPYRETICS, ANALGESICS AND ANTI-INFLAMMATORY AGENTS.
     Dates: start: 19980323
  5. ALOSITOL [Concomitant]
     Route: 048
     Dates: end: 20080201
  6. ASPIRIN [Concomitant]
     Route: 048
  7. TAKEPRON [Concomitant]
     Route: 048
  8. PL [Concomitant]
     Route: 048
     Dates: start: 20080220, end: 20080220
  9. PL [Concomitant]
     Route: 048
     Dates: start: 20080220, end: 20080220
  10. PL [Concomitant]
     Route: 048
     Dates: start: 20080220, end: 20080220
  11. PL [Concomitant]
     Route: 048
     Dates: start: 20080220, end: 20080220
  12. CLARITHROMYCIN [Concomitant]
     Route: 048
     Dates: start: 20080220, end: 20080220
  13. LAC-B [Concomitant]
     Route: 048
     Dates: start: 20080221

REACTIONS (3)
  - HYPERCALCAEMIA [None]
  - PRURITUS GENERALISED [None]
  - RENAL IMPAIRMENT [None]
